FAERS Safety Report 14360285 (Version 12)
Quarter: 2023Q4

REPORT INFORMATION
  Report Type: Spontaneous
  Country: CZ (occurrence: CZ)
  Receive Date: 20180106
  Receipt Date: 20231205
  Transmission Date: 20240109
  Serious: Yes (Life-Threatening, Hospitalization, Other)
  Sender: FDA-Public Use
  Company Number: CZ-VITABALANS-107-2017

PATIENT
  Age: 51 Year
  Sex: Female

DRUGS (30)
  1. ACETAMINOPHEN [Interacting]
     Active Substance: ACETAMINOPHEN
     Indication: Pyrexia
     Dosage: 4 GRAM, DAILY
     Route: 065
  2. ACETAMINOPHEN [Interacting]
     Active Substance: ACETAMINOPHEN
     Indication: Pain
  3. PAROXETINE [Interacting]
     Active Substance: PAROXETINE
     Indication: Mental disorder
     Dosage: 60 MILLIGRAM, ONCE A DAY
     Route: 048
  4. PAROXETINE [Interacting]
     Active Substance: PAROXETINE
     Indication: Psychiatric symptom
  5. PIPERACILLIN AND TAZOBACTAM [Suspect]
     Active Substance: PIPERACILLIN SODIUM\TAZOBACTAM SODIUM
     Indication: Infection
     Dosage: UNK
     Route: 065
  6. CISATRACURIUM [Suspect]
     Active Substance: CISATRACURIUM
     Indication: Mechanical ventilation
     Dosage: 20 MILLIGRAM
     Route: 065
  7. CHLORPROTHIXENE [Suspect]
     Active Substance: CHLORPROTHIXENE
     Indication: Psychiatric symptom
     Dosage: 50 MILLIGRAM, ONCE A DAY
     Route: 048
  8. CHLORPROTHIXENE [Suspect]
     Active Substance: CHLORPROTHIXENE
     Indication: Mental disorder
  9. CODEINE PHOSPHATE [Interacting]
     Active Substance: CODEINE PHOSPHATE
     Indication: Pain
     Dosage: UNK
     Route: 065
  10. ESMOLOL [Suspect]
     Active Substance: ESMOLOL HYDROCHLORIDE
     Indication: Cardiovascular disorder
     Dosage: UNK
     Route: 065
  11. HYDROXYZINE [Suspect]
     Active Substance: HYDROXYZINE HYDROCHLORIDE
     Indication: Product used for unknown indication
     Dosage: UNK
     Route: 065
  12. INDOMETHACIN [Suspect]
     Active Substance: INDOMETHACIN
     Indication: Pain
     Dosage: UNK
     Route: 065
  13. INDOMETHACIN [Suspect]
     Active Substance: INDOMETHACIN
     Indication: Analgesic therapy
  14. LEVOFLOXACIN [Interacting]
     Active Substance: LEVOFLOXACIN
     Indication: Antibiotic therapy
     Dosage: UNK
     Route: 065
  15. MELOXICAM [Suspect]
     Active Substance: MELOXICAM
     Indication: Pain
     Dosage: UNK
     Route: 048
  16. MELOXICAM [Suspect]
     Active Substance: MELOXICAM
     Indication: Analgesic therapy
  17. METOCLOPRAMIDE [Interacting]
     Active Substance: METOCLOPRAMIDE
     Indication: Product used for unknown indication
     Dosage: UNK
     Route: 065
  18. MIDAZOLAM [Suspect]
     Active Substance: MIDAZOLAM
     Indication: Sedation
     Dosage: 15 MG/H
     Route: 065
  19. MIDAZOLAM [Suspect]
     Active Substance: MIDAZOLAM
     Indication: Myoclonus
  20. NOREPINEPHRINE [Suspect]
     Active Substance: NOREPINEPHRINE
     Indication: Sinus tachycardia
     Dosage: UNK
     Route: 065
  21. SUFENTANIL [Interacting]
     Active Substance: SUFENTANIL
     Indication: Sedation
     Dosage: 10 MICROGRAM/HOUR
     Route: 065
  22. TRAMADOL [Interacting]
     Active Substance: TRAMADOL\TRAMADOL HYDROCHLORIDE
     Indication: Pain
     Dosage: 50 MILLIGRAM
     Route: 065
  23. TRAMADOL [Interacting]
     Active Substance: TRAMADOL\TRAMADOL HYDROCHLORIDE
     Indication: Analgesic therapy
  24. ACETAMINOPHEN\TRAMADOL [Interacting]
     Active Substance: ACETAMINOPHEN\TRAMADOL
     Indication: Product used for unknown indication
     Dosage: UNK
     Route: 065
  25. TRAZODONE [Interacting]
     Active Substance: TRAZODONE HYDROCHLORIDE
     Indication: Psychiatric symptom
     Dosage: 300 MILLIGRAM, ONCE A DAY
     Route: 048
  26. VORICONAZOLE [Suspect]
     Active Substance: VORICONAZOLE
     Indication: Pneumonia
     Dosage: UNK
     Route: 065
  27. BUDESONIDE\FORMOTEROL [Concomitant]
     Active Substance: BUDESONIDE\FORMOTEROL
     Indication: Asthma
     Dosage: 160/4.5 MG
     Route: 055
  28. BROMAZEPAM [Concomitant]
     Active Substance: BROMAZEPAM
     Indication: Psychiatric symptom
     Dosage: 2 MILLIGRAM, DAILY
     Route: 048
  29. BROMAZEPAM [Concomitant]
     Active Substance: BROMAZEPAM
     Indication: Mental disorder
  30. IVABRADINE [Concomitant]
     Active Substance: IVABRADINE
     Indication: Sinus tachycardia
     Dosage: 10 MILLIGRAM, DAILY
     Route: 048

REACTIONS (29)
  - Agitation [Unknown]
  - Apallic syndrome [Unknown]
  - Arthralgia [Unknown]
  - Brain oedema [Unknown]
  - Bronchopulmonary aspergillosis [Unknown]
  - Circulatory collapse [Unknown]
  - Delirium [Unknown]
  - Depressed level of consciousness [Unknown]
  - Dyspnoea [Unknown]
  - Hyperhidrosis [Unknown]
  - Hypertension [Unknown]
  - Leukocytosis [Unknown]
  - Metabolic acidosis [Recovered/Resolved]
  - Muscle spasms [Unknown]
  - Myoclonus [Unknown]
  - Mydriasis [Unknown]
  - Myoglobin blood increased [Unknown]
  - Oliguria [Unknown]
  - Overdose [Not Recovered/Not Resolved]
  - Pneumonia fungal [Unknown]
  - Pyrexia [Unknown]
  - Restlessness [Unknown]
  - Serotonin syndrome [Recovering/Resolving]
  - Sinus tachycardia [Unknown]
  - Tachycardia [Unknown]
  - Tremor [Unknown]
  - Drug interaction [Unknown]
  - Drug ineffective [Not Recovered/Not Resolved]
  - Intentional product misuse [Recovering/Resolving]
